FAERS Safety Report 10175937 (Version 2)
Quarter: 2014Q2

REPORT INFORMATION
  Report Type: Spontaneous
  Country: NL (occurrence: NL)
  Receive Date: 20140516
  Receipt Date: 20140522
  Transmission Date: 20141212
  Serious: Yes (Hospitalization)
  Sender: FDA-Public Use
  Company Number: NL-SA-2014SA061934

PATIENT
  Age: 46 Year
  Sex: Female

DRUGS (7)
  1. FEXOFENADINE  HYDROCHLORIDE [Suspect]
     Indication: PRODUCT USED FOR UNKNOWN INDICATION
     Dosage: FREQUENCY: 2DD1
     Route: 065
     Dates: start: 201304
  2. FEXOFENADINE  HYDROCHLORIDE [Suspect]
     Indication: PRODUCT USED FOR UNKNOWN INDICATION
     Dosage: FREQUENCY: 2DD1
     Route: 065
  3. PREDNISOLON [Concomitant]
     Dosage: FREQUENCY: 1DD3
     Route: 048
     Dates: start: 20130911, end: 20131021
  4. PROPRANOLOL [Concomitant]
     Dosage: FREQUENCY: 3DD1
     Route: 048
     Dates: start: 20130911, end: 20131021
  5. PAROXETINE [Concomitant]
     Dosage: FREQUENCY: 1DD1
     Route: 048
     Dates: start: 20130911
  6. FLIXOTIDE [Concomitant]
     Dosage: FREQUENCY: 2DD1
     Route: 055
     Dates: start: 20130911, end: 20130925
  7. SALBUTAMOL [Concomitant]
     Dosage: FREQUENCY: 3DD1
     Route: 055
     Dates: start: 20130911, end: 20131021

REACTIONS (2)
  - Palpitations [Recovered/Resolved]
  - Fatigue [Recovering/Resolving]
